FAERS Safety Report 6519287-4 (Version None)
Quarter: 2009Q4

REPORT INFORMATION
  Report Type: 
  Country: None (occurrence: None)
  Receive Date: 20091228
  Receipt Date: 20091217
  Transmission Date: 20100525
  Serious: Yes (Other)
  Sender: FDA-Public Use
  Company Number: US-JNJFOC-20091205741

PATIENT
  Sex: Female

DRUGS (1)
  1. REMICADE [Suspect]
     Indication: PSORIATIC ARTHROPATHY
     Route: 042

REACTIONS (6)
  - DRY MOUTH [None]
  - ERYTHEMA [None]
  - HEADACHE [None]
  - JOINT SWELLING [None]
  - SWELLING FACE [None]
  - VISION BLURRED [None]
